FAERS Safety Report 13678227 (Version 2)
Quarter: 2017Q3

REPORT INFORMATION
  Report Type: Spontaneous
  Country: CN (occurrence: CN)
  Receive Date: 20170622
  Receipt Date: 20170705
  Transmission Date: 20171127
  Serious: Yes (Hospitalization)
  Sender: FDA-Public Use
  Company Number: PHHY2017CN090434

PATIENT
  Sex: Female

DRUGS (1)
  1. TASIGNA [Suspect]
     Active Substance: NILOTINIB
     Indication: CHRONIC MYELOID LEUKAEMIA
     Dosage: 600 MG, QD (1 CAPSULE IN MORNING, 2 CAPSULES IN EVENING)
     Route: 048
     Dates: start: 20170609, end: 20170613

REACTIONS (11)
  - Disseminated intravascular coagulation [Recovering/Resolving]
  - Vomiting [Recovering/Resolving]
  - Dizziness [Recovering/Resolving]
  - Haemorrhagic ascites [Recovering/Resolving]
  - Oliguria [Recovering/Resolving]
  - Chest discomfort [Recovering/Resolving]
  - Abdominal pain [Recovering/Resolving]
  - Haematocrit decreased [Recovering/Resolving]
  - Eating disorder [Recovering/Resolving]
  - Abdominal distension [Recovering/Resolving]
  - Poor quality sleep [Recovering/Resolving]

NARRATIVE: CASE EVENT DATE: 20170614
